FAERS Safety Report 4719425-X (Version None)
Quarter: 2005Q3

REPORT INFORMATION
  Report Type: 
  Country: None (occurrence: None)
  Receive Date: 20050719
  Receipt Date: 20050705
  Transmission Date: 20060218
  Serious: Yes (Death, Life-Threatening)
  Sender: FDA-Public Use
  Company Number: 2005EU000330

PATIENT
  Age: 50 Year
  Sex: Female

DRUGS (1)
  1. FK506 (TACROLIMUS) CAPSULE [Suspect]
     Indication: LIVER TRANSPLANT
     Dosage: 3.00 MG MG, D, ORAL
     Route: 048
     Dates: start: 20041001

REACTIONS (7)
  - CHOLESTASIS [None]
  - CONDITION AGGRAVATED [None]
  - DISEASE RECURRENCE [None]
  - DRUG INEFFECTIVE [None]
  - HEPATITIS C [None]
  - RENAL FAILURE [None]
  - TRANSPLANT REJECTION [None]
